FAERS Safety Report 21903840 (Version 2)
Quarter: 2023Q1

REPORT INFORMATION
  Report Type: Spontaneous
  Country: US (occurrence: US)
  Receive Date: 20230124
  Receipt Date: 20230126
  Transmission Date: 20230418
  Serious: No
  Sender: FDA-Public Use
  Company Number: US-PFIZER INC-202300031132

PATIENT
  Age: 56 Year
  Sex: Male

DRUGS (2)
  1. LORBRENA [Suspect]
     Active Substance: LORLATINIB
     Indication: Lung neoplasm malignant
     Dosage: 100 MG
     Dates: start: 202112
  2. LORBRENA [Suspect]
     Active Substance: LORLATINIB
     Dosage: 75 MG, 1X/DAY
     Route: 048
     Dates: start: 202211

REACTIONS (3)
  - Troponin increased [Recovering/Resolving]
  - Back pain [Recovering/Resolving]
  - Inflammation [Unknown]

NARRATIVE: CASE EVENT DATE: 20230105
